FAERS Safety Report 6333120-5 (Version None)
Quarter: 2009Q3

REPORT INFORMATION
  Report Type: 
  Country: None (occurrence: None)
  Receive Date: 20090828
  Receipt Date: 20090817
  Transmission Date: 20100115
  Serious: Yes (Other)
  Sender: FDA-Public Use
  Company Number: US-PFIZER INC-2009255701

PATIENT
  Age: 7 Year
  Sex: Male

DRUGS (1)
  1. EXUBERA [Suspect]
     Dosage: UNK

REACTIONS (1)
  - ANAPHYLACTIC SHOCK [None]
